FAERS Safety Report 7816714-7 (Version None)
Quarter: 2011Q4

REPORT INFORMATION
  Report Type: 
  Country: None (occurrence: None)
  Receive Date: 20111013
  Receipt Date: 20110930
  Transmission Date: 20120403
  Serious: Yes (Death)
  Sender: FDA-Public Use
  Company Number: 2011HGS-002598

PATIENT
  Age: 64 Year
  Sex: Female

DRUGS (21)
  1. CIPRO [Concomitant]
  2. FUROSEMIDE [Concomitant]
  3. GABAPENTIN [Concomitant]
  4. VALTREX (VALACICLOVIR HYDROCHLORIDE) (VALACICLOVIR HYDROCHLORIDE) [Concomitant]
  5. TESSALON PERLE (BENZONATATE) (BENZONATATE) [Concomitant]
  6. IRON SUPPLEMENT (IRON) (IRON) [Concomitant]
  7. VITAMIN E (TOCOPHEROL) (TOCOPHEROL) [Concomitant]
  8. COUMADIN [Concomitant]
  9. CALCIUM (CALCIUM) (CALCIUM) [Concomitant]
  10. VITAMIN D (ERGOCALCIFEROL) (ERGOCALCIFEROL) [Concomitant]
  11. MIRALAX (MACROGOL) (MACROGOL) [Concomitant]
  12. PLAQUENIL (HYDROXYCHLOROQUINE SULFATE) (HYDROXYCHLOROQUINE SULFATE) [Concomitant]
  13. BENLYSTA [Suspect]
     Indication: SYSTEMIC LUPUS ERYTHEMATOSUS
     Dosage: 1 IN 2 WK, INTRAVENOUS (NOT OTHERWISE SPECIFIED)
     Route: 042
     Dates: start: 20110610, end: 20110625
  14. HYDROCODONE (HYDROCODONE) (HYDROCODONE) [Concomitant]
  15. PREVACID (LANSOPRAZOLE) (LANSOPRAZOLE) [Concomitant]
  16. FLEXERIL (CYCLOBENZAPRINE HYDROCHLORIDE) (CYCLOBENZAPRINE HYDROCHLORID [Concomitant]
  17. POTASSIUM  SUPPLEMENT (POTASSIUM) (POTASSIUM) [Concomitant]
  18. PREDNISONE [Concomitant]
  19. ASPIRIN [Concomitant]
  20. ATENOLOL [Concomitant]
  21. ALBUTEROL (SALBUTAMOL) (SALBUTAMOL) [Concomitant]

REACTIONS (1)
  - DEATH [None]
